FAERS Safety Report 7656164-X (Version None)
Quarter: 2011Q3

REPORT INFORMATION
  Report Type: 
  Country: None (occurrence: None)
  Receive Date: 20110804
  Receipt Date: 20110729
  Transmission Date: 20111222
  Serious: Yes (Other)
  Sender: FDA-Public Use
  Company Number: PL-PFIZER INC-2011174258

PATIENT
  Age: 23 Year
  Sex: Female

DRUGS (1)
  1. PROVERA [Suspect]
     Dosage: 5 MG, UNK

REACTIONS (1)
  - MYOCARDIAL INFARCTION [None]
